FAERS Safety Report 20773459 (Version 1)
Quarter: 2022Q2

REPORT INFORMATION
  Report Type: Report from Study
  Country: CA (occurrence: None)
  Receive Date: 20220502
  Receipt Date: 20220502
  Transmission Date: 20220720
  Serious: Yes (Other)
  Sender: FDA-Public Use
  Company Number: CA-PFIZER INC-202200622823

PATIENT
  Age: 64 Year
  Sex: Female

DRUGS (4)
  1. METHOTREXATE [Suspect]
     Active Substance: METHOTREXATE
     Indication: Product used for unknown indication
     Route: 065
  2. CERTOLIZUMAB PEGOL [Suspect]
     Active Substance: CERTOLIZUMAB PEGOL
     Indication: Psoriatic arthropathy
     Route: 058
  3. CERTOLIZUMAB PEGOL [Suspect]
     Active Substance: CERTOLIZUMAB PEGOL
     Route: 058
  4. PREDNISONE [Concomitant]
     Active Substance: PREDNISONE
     Route: 065

REACTIONS (8)
  - Incorrect dose administered [Recovered/Resolved]
  - Blood urine present [Recovered/Resolved]
  - Diarrhoea [Recovered/Resolved]
  - Fatigue [Recovered/Resolved]
  - Headache [Recovered/Resolved]
  - Lymphocyte count increased [Recovered/Resolved]
  - Malaise [Recovered/Resolved]
  - Psoriatic arthropathy [Recovered/Resolved]
